FAERS Safety Report 5836280-5 (Version None)
Quarter: 2008Q3

REPORT INFORMATION
  Report Type: 
  Country: None (occurrence: None)
  Receive Date: 20080807
  Receipt Date: 20080729
  Transmission Date: 20090109
  Serious: Yes (Other)
  Sender: FDA-Public Use
  Company Number: US-JNJFOC-20080706859

PATIENT
  Sex: Male
  Weight: 92.53 kg

DRUGS (2)
  1. REMICADE [Suspect]
     Route: 042
     Dates: end: 20050701
  2. REMICADE [Suspect]
     Indication: RHEUMATOID ARTHRITIS
     Route: 042
     Dates: end: 20050701

REACTIONS (2)
  - GLIOBLASTOMA [None]
  - GLUCOSE TOLERANCE IMPAIRED [None]
